FAERS Safety Report 4849762-X (Version None)
Quarter: 2005Q4

REPORT INFORMATION
  Report Type: 
  Country: None (occurrence: None)
  Receive Date: 20051110
  Receipt Date: 20041006
  Transmission Date: 20060501
  Serious: No
  Sender: FDA-Public Use
  Company Number: 04H-163-0276565-00

PATIENT
  Sex: Male

DRUGS (1)
  1. DOBUTAMINE/5% DEX. INJECTION, 2MG/ML, CR3 FLEX. CONTAINER(DOBUTAMINE I [Suspect]
     Indication: CARDIAC STRESS TEST
     Dosage: 10 MCG/KG/MIN, INTRAVENOUS; SEE IMAGE
     Route: 042

REACTIONS (3)
  - BLOOD PRESSURE INCREASED [None]
  - CHEST PAIN [None]
  - HEADACHE [None]
